FAERS Safety Report 4630207-X (Version None)
Quarter: 2005Q2

REPORT INFORMATION
  Report Type: 
  Country: None (occurrence: None)
  Receive Date: 20050408
  Receipt Date: 20050316
  Transmission Date: 20051028
  Serious: Yes (Life-Threatening, Hospitalization)
  Sender: FDA-Public Use
  Company Number: US-BOEHRINGER INGELHEIM PHARMACEUTICALS, INC.-2005-BP-04380BP

PATIENT
  Age: 38 Year
  Sex: Male

DRUGS (2)
  1. VIRAMUNE [Suspect]
     Indication: HIV INFECTION
     Route: 048
     Dates: start: 19990101
  2. SUSTIVA [Suspect]

REACTIONS (4)
  - PAIN [None]
  - RASH [None]
  - STEVENS-JOHNSON SYNDROME [None]
  - THERMAL BURN [None]
